FAERS Safety Report 12601456 (Version 1)
Quarter: 2016Q3

REPORT INFORMATION
  Report Type: Spontaneous
  Country: US (occurrence: None)
  Receive Date: 20160727
  Receipt Date: 20160727
  Transmission Date: 20161109
  Serious: Yes (Disabling)
  Sender: FDA-Public Use
  Company Number: None

PATIENT
  Age: 29 Year
  Sex: Female
  Weight: 63.5 kg

DRUGS (1)
  1. CIPROFLOXACIN, 500 MG [Suspect]
     Active Substance: CIPROFLOXACIN
     Indication: URINARY TRACT INFECTION
     Route: 048
     Dates: start: 20160723, end: 20160723

REACTIONS (12)
  - Nausea [None]
  - Vomiting [None]
  - Tremor [None]
  - Palpitations [None]
  - Body temperature increased [None]
  - Agitation [None]
  - Anxiety [None]
  - Dizziness [None]
  - Confusional state [None]
  - Hyperhidrosis [None]
  - Diarrhoea [None]
  - Altered state of consciousness [None]

NARRATIVE: CASE EVENT DATE: 20160723
